FAERS Safety Report 8181576 (Version 5)
Quarter: 2013Q4

REPORT INFORMATION
  Report Type: Report from Study
  Country: GB (occurrence: GB)
  Receive Date: 20111014
  Receipt Date: 20131016
  Transmission Date: 20140711
  Serious: Yes (Death)
  Sender: FDA-Public Use
  Company Number: GB-PFIZER INC-2011243060

PATIENT
  Age: 1 Day
  Sex: Female
  Weight: 3.8 kg

DRUGS (15)
  1. NORADRENALINE [Concomitant]
     Dosage: UNK
     Dates: start: 20111010
  2. SODIUM BICARBONATE [Concomitant]
     Dosage: UNK
     Dates: start: 20111010, end: 20111010
  3. KETOROLAC TROMETHAMINE [Concomitant]
     Dosage: UNK
     Dates: start: 20111010, end: 20111010
  4. SILDENAFIL CITRATE [Suspect]
     Indication: PULMONARY HYPERTENSION
     Dosage: 0.03 MG/KG, PER HOUR
     Route: 042
     Dates: start: 20111010, end: 20111010
  5. DOPAMINE [Concomitant]
     Dosage: UNK
     Dates: start: 20111010
  6. MORPHINE [Concomitant]
     Dosage: UNK
     Dates: start: 20111010
  7. ADRENALINE [Concomitant]
     Dosage: UNK
     Dates: start: 20111010
  8. GENTAMICIN [Concomitant]
     Dosage: UNK
     Dates: start: 20111010, end: 20111010
  9. AMOXICILLIN [Concomitant]
     Dosage: UNK
     Dates: start: 20111010, end: 20111010
  10. SUXAMETHONIUM [Concomitant]
     Dosage: UNK
     Dates: start: 20111010, end: 20111010
  11. ATROPINE [Concomitant]
     Dosage: UNK
     Dates: start: 20111010, end: 20111010
  12. PHYTOMENADIONE [Concomitant]
     Dosage: UNK
     Dates: start: 20111010, end: 20111010
  13. SURFACTANT PROTEIN D (BIOMARKER) [Concomitant]
     Dosage: UNK
     Dates: start: 20111010, end: 20111010
  14. MAGNESIUM [Concomitant]
     Dosage: UNK
     Dates: start: 20111010, end: 20111010
  15. NITRIC OXIDE [Concomitant]
     Dosage: UNK
     Route: 055
     Dates: start: 20111010

REACTIONS (2)
  - Persistent foetal circulation [Fatal]
  - Congenital pneumonia [Fatal]
